FAERS Safety Report 10359549 (Version 1)
Quarter: 2014Q3

REPORT INFORMATION
  Report Type: Spontaneous
  Country: US (occurrence: US)
  Receive Date: 20140804
  Receipt Date: 20140804
  Transmission Date: 20150326
  Serious: No
  Sender: FDA-Public Use
  Company Number: US-BAYER-2014-110203

PATIENT

DRUGS (6)
  1. ALEVE [Suspect]
     Active Substance: NAPROXEN SODIUM
     Indication: CONTUSION
  2. ALEVE [Suspect]
     Active Substance: NAPROXEN SODIUM
     Indication: PAIN
  3. HYDROCODONE [Suspect]
     Active Substance: HYDROCODONE
     Indication: PAIN
  4. HYDROCODONE [Suspect]
     Active Substance: HYDROCODONE
     Indication: BURNING SENSATION
     Dosage: 7.5 MG, UNK
  5. ALEVE [Suspect]
     Active Substance: NAPROXEN SODIUM
     Indication: BURNING SENSATION
     Dosage: UNK
  6. HYDROCODONE [Suspect]
     Active Substance: HYDROCODONE
     Indication: CONTUSION

REACTIONS (4)
  - Drug ineffective [None]
  - Contusion [None]
  - Burning sensation [None]
  - Pain [None]
